FAERS Safety Report 10518832 (Version 1)
Quarter: 2014Q4

REPORT INFORMATION
  Report Type: Spontaneous
  Country: US (occurrence: None)
  Receive Date: 20141014
  Receipt Date: 20141014
  Transmission Date: 20150528
  Serious: Yes (Life-Threatening)
  Sender: FDA-Public Use
  Company Number: None

PATIENT
  Age: 62 Year
  Sex: Female
  Weight: 90.72 kg

DRUGS (1)
  1. WARFARIN 5MG [Suspect]
     Active Substance: WARFARIN
     Indication: CARDIAC VALVE DISEASE
     Dosage: 1 PILL / VARIES ONCE DAILY TAKEN BY MOUTH
     Route: 048
     Dates: start: 20140801, end: 20141011

REACTIONS (2)
  - International normalised ratio fluctuation [None]
  - Product quality issue [None]

NARRATIVE: CASE EVENT DATE: 20141011
